FAERS Safety Report 18521309 (Version 1)
Quarter: 2020Q4

REPORT INFORMATION
  Report Type: Spontaneous
  Country: US (occurrence: US)
  Receive Date: 20201118
  Receipt Date: 20201118
  Transmission Date: 20210114
  Serious: Yes (Other)
  Sender: FDA-Public Use
  Company Number: None

PATIENT
  Age: 66 Year
  Sex: Female

DRUGS (10)
  1. COSOPT OPHT DROP [Concomitant]
  2. ATORVASTATIN [Concomitant]
     Active Substance: ATORVASTATIN
  3. TADALAFIL. [Concomitant]
     Active Substance: TADALAFIL
  4. LOSARTAN. [Concomitant]
     Active Substance: LOSARTAN
  5. FAMOTIDINE. [Concomitant]
     Active Substance: FAMOTIDINE
  6. MVI [Concomitant]
     Active Substance: VITAMINS
  7. LEFLUNOMIDE. [Concomitant]
     Active Substance: LEFLUNOMIDE
  8. BETAMETHASONE DIPROPIONATE TOP OINT [Concomitant]
  9. AMBRISENTAN 10MG TABLETS 30/BO: 10MG [Suspect]
     Active Substance: AMBRISENTAN
     Indication: PULMONARY HYPERTENSION
     Route: 048
     Dates: start: 202007
  10. VITAMIN D2 [Suspect]
     Active Substance: ERGOCALCIFEROL

REACTIONS (1)
  - Liver function test increased [None]

NARRATIVE: CASE EVENT DATE: 20201116
